FAERS Safety Report 24130823 (Version 1)
Quarter: 2024Q3

REPORT INFORMATION
  Report Type: Spontaneous
  Country: US (occurrence: US)
  Receive Date: 20240724
  Receipt Date: 20240724
  Transmission Date: 20241017
  Serious: Yes (Hospitalization, Other)
  Sender: BRISTOL MYERS SQUIBB
  Company Number: US-BRISTOL-MYERS SQUIBB COMPANY-2024-117000

PATIENT
  Age: 49 Year
  Sex: Female
  Weight: 89.36 kg

DRUGS (1)
  1. LENALIDOMIDE [Suspect]
     Active Substance: LENALIDOMIDE
     Indication: Plasma cell myeloma
     Dosage: DAILY 1-14, THEN 7 DAYS OFF
     Route: 048
     Dates: start: 20240119

REACTIONS (5)
  - Arthropathy [Unknown]
  - Thrombosis [Recovered/Resolved]
  - Sepsis [Unknown]
  - Urinary tract infection [Recovered/Resolved]
  - Off label use [Unknown]
